FAERS Safety Report 5133540-0 (Version None)
Quarter: 2006Q4

REPORT INFORMATION
  Report Type: 
  Country: None (occurrence: None)
  Receive Date: 20061024
  Receipt Date: 20061013
  Transmission Date: 20070319
  Serious: Yes (Other)
  Sender: FDA-Public Use
  Company Number: 2006UW19892

PATIENT
  Sex: Female

DRUGS (6)
  1. NEXIUM [Suspect]
     Indication: GASTROOESOPHAGEAL REFLUX DISEASE
     Route: 048
  2. CALCIUM GLUCONATE [Concomitant]
     Indication: FIBROMYALGIA
     Route: 048
  3. ASCORBIC ACID [Concomitant]
     Indication: FIBROMYALGIA
     Route: 048
  4. VITAMIN E [Concomitant]
     Indication: FIBROMYALGIA
     Route: 048
  5. OIL OF PRIMROSE [Concomitant]
     Indication: FIBROMYALGIA
     Route: 048
  6. LEVOTHYROXINE SODIUM [Concomitant]
     Indication: THYROID DISORDER
     Route: 048

REACTIONS (1)
  - BENIGN BREAST NEOPLASM [None]
